FAERS Safety Report 9627947 (Version 2)
Quarter: 2013Q4

REPORT INFORMATION
  Report Type: Report from Study
  Country: US (occurrence: US)
  Receive Date: 20131016
  Receipt Date: 20131016
  Transmission Date: 20140711
  Serious: Yes (Hospitalization)
  Sender: FDA-Public Use
  Company Number: US-ABBVIE-13P-163-1129961-00

PATIENT
  Age: 52 Year
  Sex: Female
  Weight: 83.99 kg

DRUGS (9)
  1. HUMIRA [Suspect]
     Indication: COLITIS ULCERATIVE
     Dates: start: 20130609, end: 20130721
  2. HUMIRA [Suspect]
     Indication: PSORIASIS
     Dates: start: 201308
  3. LOSARTAN POTASSIUM [Concomitant]
     Indication: BLOOD PRESSURE
  4. ZOLOFT [Concomitant]
     Indication: DEPRESSION
  5. DEPLIN [Concomitant]
     Indication: DEPRESSION
  6. LIALDA [Concomitant]
     Indication: UNEVALUABLE EVENT
  7. MULTIVITAMIN [Concomitant]
     Indication: PRODUCT USED FOR UNKNOWN INDICATION
  8. FIBERCON [Concomitant]
     Indication: PRODUCT USED FOR UNKNOWN INDICATION
  9. CLOBEX [Concomitant]
     Indication: PRODUCT USED FOR UNKNOWN INDICATION

REACTIONS (3)
  - Colitis ulcerative [Recovered/Resolved]
  - Gastroenteritis viral [Recovered/Resolved]
  - Clostridium difficile infection [Recovered/Resolved]
